FAERS Safety Report 22230828 (Version 1)
Quarter: 2023Q2

REPORT INFORMATION
  Report Type: Spontaneous
  Country: CA (occurrence: None)
  Receive Date: 20230420
  Receipt Date: 20230420
  Transmission Date: 20230722
  Serious: Yes (Other)
  Sender: FDA-Public Use
  Company Number: CA-ROCHE-3332332

PATIENT
  Age: 81 Year
  Sex: Male

DRUGS (7)
  1. RITUXIMAB [Suspect]
     Active Substance: RITUXIMAB
     Indication: Rheumatoid arthritis
     Route: 041
  2. RITUXIMAB [Suspect]
     Active Substance: RITUXIMAB
     Route: 042
  3. ACETAMINOPHEN\OXYCODONE HYDROCHLORIDE [Concomitant]
     Active Substance: ACETAMINOPHEN\OXYCODONE HYDROCHLORIDE
  4. BISOPROLOL [Concomitant]
     Active Substance: BISOPROLOL
  5. DICLOFENAC [Concomitant]
     Active Substance: DICLOFENAC
  6. FERROUS GLUCONATE [Concomitant]
     Active Substance: FERROUS GLUCONATE
  7. HYDROXYCHLOROQUINE [Concomitant]
     Active Substance: HYDROXYCHLOROQUINE

REACTIONS (10)
  - Arrhythmia [Unknown]
  - Asthenia [Unknown]
  - Bone density abnormal [Unknown]
  - Dyspnoea [Unknown]
  - Fatigue [Unknown]
  - Hyperkeratosis [Unknown]
  - Lung neoplasm malignant [Unknown]
  - Skin cancer [Unknown]
  - Weight increased [Unknown]
  - Wheezing [Unknown]
